FAERS Safety Report 19560593 (Version 1)
Quarter: 2021Q3

REPORT INFORMATION
  Report Type: Spontaneous
  Country: US (occurrence: US)
  Receive Date: 20210715
  Receipt Date: 20210715
  Transmission Date: 20211014
  Serious: No
  Sender: FDA-Public Use
  Company Number: None

PATIENT
  Age: 46 Year
  Sex: Female

DRUGS (3)
  1. NEUTROGENA SUNSCREEN NOS [Suspect]
     Active Substance: AVOBENZONE\HOMOSALATE\OCTISALATE\OCTOCRYLENE OR AVOBENZONE\HOMOSALATE\OCTISALATE\OCTOCRYLENE\OXYBENZONE
     Indication: PROPHYLAXIS AGAINST SOLAR RADIATION
     Dosage: ?          OTHER STRENGTH:SPF;QUANTITY:5.0 OUNCE(S);?
     Route: 061
  2. DAILY WOMEN^S VITAMIN [Concomitant]
  3. FLAXSEED [Concomitant]
     Active Substance: FLAX SEED

REACTIONS (2)
  - Sunburn [None]
  - Skin lesion [None]
